FAERS Safety Report 7630607-X (Version None)
Quarter: 2011Q3

REPORT INFORMATION
  Report Type: 
  Country: None (occurrence: None)
  Receive Date: 20110722
  Receipt Date: 20110713
  Transmission Date: 20111222
  Serious: Yes (Hospitalization)
  Sender: FDA-Public Use
  Company Number: JP-ELI_LILLY_AND_COMPANY-JP201106008671

PATIENT
  Age: 59 Year
  Sex: Male
  Weight: 105 kg

DRUGS (7)
  1. TRICHLORMETHIAZIDE [Concomitant]
     Dosage: 2 MG, UNK
     Route: 048
  2. ADALAT [Concomitant]
     Dosage: 40 MG, UNK
     Route: 048
  3. ASPIRIN [Concomitant]
     Dosage: 100 MG, UNK
     Route: 048
  4. RABEPRAZOLE SODIUM [Concomitant]
     Dosage: 10 MG, UNK
     Route: 048
  5. MICARDIS [Concomitant]
     Dosage: 80 MG, UNK
     Route: 048
  6. METFORMIN HCL [Concomitant]
     Dosage: 2250 MG, UNK
     Route: 048
  7. BYETTA [Suspect]
     Indication: DIABETES MELLITUS
     Dosage: 5 UG, BID
     Route: 058
     Dates: start: 20110527

REACTIONS (3)
  - RENAL IMPAIRMENT [None]
  - DECREASED APPETITE [None]
  - DEHYDRATION [None]
